FAERS Safety Report 5281590-6 (Version None)
Quarter: 2007Q1

REPORT INFORMATION
  Report Type: 
  Country: None (occurrence: None)
  Receive Date: 20061222
  Receipt Date: 20060725
  Transmission Date: 20070707
  Serious: No
  Sender: FDA-Public Use
  Company Number: 2006-0009933

PATIENT
  Sex: Male

DRUGS (3)
  1. VIREAD [Suspect]
     Indication: HIV INFECTION
     Dates: start: 20050101, end: 20060301
  2. SUSTIVA [Concomitant]
  3. EPIVIR [Concomitant]

REACTIONS (8)
  - ABDOMINAL PAIN [None]
  - ABNORMAL FAECES [None]
  - BLOOD CHOLESTEROL INCREASED [None]
  - DIARRHOEA [None]
  - DISORIENTATION [None]
  - HEPATOMEGALY [None]
  - PANCREATIC ATROPHY [None]
  - PHARYNGOLARYNGEAL PAIN [None]
